FAERS Safety Report 22598903 (Version 1)
Quarter: 2023Q2

REPORT INFORMATION
  Report Type: Spontaneous
  Country: FR (occurrence: FR)
  Receive Date: 20230614
  Receipt Date: 20230614
  Transmission Date: 20230722
  Serious: Yes (Other)
  Sender: FDA-Public Use
  Company Number: FR-MYLANLABS-2023M1061777

PATIENT
  Age: 29 Year
  Sex: Male

DRUGS (1)
  1. ESOMEPRAZOLE [Suspect]
     Active Substance: ESOMEPRAZOLE
     Indication: Gastrooesophageal reflux disease
     Dosage: 40 MILLIGRAM, QD (MORNING)
     Route: 065
     Dates: end: 20230606

REACTIONS (12)
  - Near death experience [Unknown]
  - Magnesium deficiency [Unknown]
  - Disturbance in attention [Unknown]
  - Anxiety disorder [Unknown]
  - Bone pain [Unknown]
  - Visual impairment [Unknown]
  - Ear, nose and throat disorder [Unknown]
  - Panic attack [Recovered/Resolved]
  - Heart rate increased [Unknown]
  - Pain in extremity [Unknown]
  - Fatigue [Unknown]
  - Myalgia [Unknown]
